FAERS Safety Report 7763777-3 (Version None)
Quarter: 2011Q3

REPORT INFORMATION
  Report Type: 
  Country: None (occurrence: None)
  Receive Date: 20110916
  Receipt Date: 20110902
  Transmission Date: 20111222
  Serious: Yes (Other)
  Sender: FDA-Public Use
  Company Number: 2011090064

PATIENT
  Age: 68 Year
  Sex: Male

DRUGS (9)
  1. OXIS TURBOHALER (FORMATEROL FUMARATE) [Concomitant]
  2. RENITEN MITE (ENALAPRIL MALEATE) [Concomitant]
  3. VIAGRA [Suspect]
     Dosage: 75 MG (25 MG, 3 IN 1 D), ORAL
     Route: 048
     Dates: start: 20110314, end: 20110316
  4. KALIUMCHLORID (POTASSIUM CHLORIDE) [Concomitant]
  5. PULMICORT [Concomitant]
  6. ADALAT [Concomitant]
  7. TORSEMIDE [Suspect]
     Dosage: 20 MG (10 MG, 2 IN 1 D), ORAL
     Route: 048
     Dates: start: 20110314, end: 20110318
  8. MARCUMAR [Concomitant]
  9. SELIPRAN (PRAVASTATIN SODIUM) [Concomitant]

REACTIONS (3)
  - PRURITUS [None]
  - RASH [None]
  - HYPERSENSITIVITY [None]
